FAERS Safety Report 13692276 (Version 1)
Quarter: 2017Q2

REPORT INFORMATION
  Report Type: Spontaneous
  Country: US (occurrence: US)
  Receive Date: 20170627
  Receipt Date: 20170627
  Transmission Date: 20170830
  Serious: No
  Sender: FDA-Public Use
  Company Number: US-ASTRAZENECA-2017SE65628

PATIENT
  Age: 634 Month
  Sex: Female
  Weight: 63.5 kg

DRUGS (9)
  1. AMLODIPINE [Concomitant]
     Active Substance: AMLODIPINE BESYLATE
  2. PLAVIX [Concomitant]
     Active Substance: CLOPIDOGREL BISULFATE
  3. LEVEMIR [Concomitant]
     Active Substance: INSULIN DETEMIR
  4. METOPROLOL. [Suspect]
     Active Substance: METOPROLOL
     Route: 065
  5. METFORMIN [Concomitant]
     Active Substance: METFORMIN HYDROCHLORIDE
  6. ATORVASTATIN [Concomitant]
     Active Substance: ATORVASTATIN
  7. OMEPRAZOLE. [Suspect]
     Active Substance: OMEPRAZOLE
     Route: 065
  8. ADVIL [Suspect]
     Active Substance: IBUPROFEN
     Route: 065
     Dates: start: 201706
  9. GLIPIZIDE. [Concomitant]
     Active Substance: GLIPIZIDE

REACTIONS (4)
  - Pruritus [Unknown]
  - Eye inflammation [Unknown]
  - Blood glucose increased [Unknown]
  - Urticaria [Unknown]

NARRATIVE: CASE EVENT DATE: 201706
